FAERS Safety Report 22600883 (Version 1)
Quarter: 2023Q2

REPORT INFORMATION
  Report Type: Spontaneous
  Country: US (occurrence: US)
  Receive Date: 20230614
  Receipt Date: 20230614
  Transmission Date: 20230722
  Serious: No
  Sender: FDA-Public Use
  Company Number: US-PFIZER INC-PV202300103009

PATIENT
  Age: 61 Year
  Sex: Female

DRUGS (2)
  1. IBRANCE [Suspect]
     Active Substance: PALBOCICLIB
     Indication: Breast cancer female
     Dosage: 75 MG, CYCLIC (DAILY FOR 21 DAYS ON, THEN 7 DAYS OFF)
     Route: 048
     Dates: start: 20221201
  2. TIZANIDINE [Concomitant]
     Active Substance: TIZANIDINE
     Dosage: UNK

REACTIONS (1)
  - Fatigue [Unknown]
